FAERS Safety Report 12841492 (Version 1)
Quarter: 2016Q4

REPORT INFORMATION
  Report Type: Report from Study
  Country: None (occurrence: CO)
  Receive Date: 20161012
  Receipt Date: 20161012
  Transmission Date: 20170207
  Serious: Yes (Death, Hospitalization)
  Sender: FDA-Public Use
  Company Number: CO-ABBVIE-16P-036-1751182-00

PATIENT
  Age: 47 Year
  Sex: Male

DRUGS (2)
  1. HUMIRA [Suspect]
     Active Substance: ADALIMUMAB
     Indication: ANKYLOSING SPONDYLITIS
     Route: 058
     Dates: start: 20060912, end: 20151203
  2. HUMIRA [Suspect]
     Active Substance: ADALIMUMAB
     Route: 058
     Dates: start: 20151203, end: 20160924

REACTIONS (5)
  - Cardio-respiratory arrest [Fatal]
  - Immunodeficiency [Fatal]
  - Respiratory failure [Fatal]
  - Vomiting [Fatal]
  - Influenza [Fatal]

NARRATIVE: CASE EVENT DATE: 20161004
